FAERS Safety Report 8206087-2 (Version None)
Quarter: 2012Q1

REPORT INFORMATION
  Report Type: 
  Country: None (occurrence: None)
  Receive Date: 20120313
  Receipt Date: 20120301
  Transmission Date: 20120608
  Serious: No
  Sender: FDA-Public Use
  Company Number: US-B.I. PHARMACEUTICALS,INC./RIDGEFIELD-2012-BP-03992BP

PATIENT
  Age: 90 Year
  Sex: Male

DRUGS (5)
  1. LIPITOR [Concomitant]
  2. LISINOPRIL [Concomitant]
  3. PRADAXA [Suspect]
     Indication: ATRIAL FIBRILLATION
     Dosage: 300 MG
     Route: 048
     Dates: start: 20111201
  4. OMEPRAZOLE [Concomitant]
     Indication: ULCER
     Dates: start: 19600101
  5. HYTRIN [Concomitant]

REACTIONS (2)
  - DYSPEPSIA [None]
  - EATING DISORDER [None]
